FAERS Safety Report 19009117 (Version 1)
Quarter: 2021Q1

REPORT INFORMATION
  Report Type: Spontaneous
  Country: US (occurrence: US)
  Receive Date: 20210316
  Receipt Date: 20210316
  Transmission Date: 20210420
  Serious: Yes (Other)
  Sender: FDA-Public Use
  Company Number: US-HIKMA PHARMACEUTICALS USA INC.-US-H14001-21-01137

PATIENT
  Age: 53 Year
  Sex: Female

DRUGS (1)
  1. KETAMINE [Suspect]
     Active Substance: KETAMINE
     Indication: BRACHIAL PLEXOPATHY
     Dosage: 6 SESSIONS OF KETAMINE INFUSION AT 0.5 MG/KG (25 MG FOR THIS PATIENT), OVER ONE HOUR

REACTIONS (1)
  - Somatic symptom disorder [Unknown]
